FAERS Safety Report 6816940-X (Version None)
Quarter: 2010Q2

REPORT INFORMATION
  Report Type: 
  Country: None (occurrence: None)
  Receive Date: 20100630
  Receipt Date: 20100617
  Transmission Date: 20101027
  Serious: Yes (Hospitalization)
  Sender: FDA-Public Use
  Company Number: TPG2010A00398

PATIENT
  Age: 76 Year
  Sex: Male

DRUGS (7)
  1. ACTOS [Suspect]
     Indication: DIABETES MELLITUS
     Dosage: 45 MG (45 MG, 1 IN 1 D), PER ORAL
     Route: 048
     Dates: end: 20100327
  2. LANTUS [Suspect]
     Indication: DIABETES MELLITUS
     Dosage: 10 IU SUBCUTANEOUS
     Route: 058
     Dates: end: 20100327
  3. AMARYL [Suspect]
     Dosage: 4 MG (4 MG, 1 IN 1 D) PER ORAL
     Route: 048
     Dates: end: 20100327
  4. GLUCOPHAGE [Suspect]
     Dosage: 1000 MG (1000 MG, 1 IN 1 D) PER ORAL
     Route: 048
     Dates: end: 20100327
  5. ASPIRIN [Concomitant]
  6. TOLTERODINE TARTRATE [Concomitant]
  7. PRAVASTATIN [Concomitant]

REACTIONS (3)
  - HYPOGLYCAEMIA [None]
  - SOMNOLENCE [None]
  - UNRESPONSIVE TO STIMULI [None]
